FAERS Safety Report 14936144 (Version 2)
Quarter: 2018Q2

REPORT INFORMATION
  Report Type: Spontaneous
  Country: IT (occurrence: IT)
  Receive Date: 20180524
  Receipt Date: 20180601
  Transmission Date: 20180711
  Serious: No
  Sender: FDA-Public Use
  Company Number: IT-BIOVERATIV-2018BV000295

PATIENT
  Age: 3 Year
  Sex: Male
  Weight: 17 kg

DRUGS (1)
  1. ELOCTA [Suspect]
     Active Substance: EFMOROCTOCOG ALFA
     Indication: FACTOR VIII DEFICIENCY
     Route: 065
     Dates: start: 201605

REACTIONS (2)
  - Haemarthrosis [Unknown]
  - Head injury [Unknown]

NARRATIVE: CASE EVENT DATE: 20180517
